FAERS Safety Report 16528190 (Version 2)
Quarter: 2020Q4

REPORT INFORMATION
  Report Type: Report from Study
  Country: CA (occurrence: CA)
  Receive Date: 20190704
  Receipt Date: 20201105
  Transmission Date: 20210113
  Serious: Yes (Other)
  Sender: FDA-Public Use
  Company Number: CA-JNJFOC-20190625321

PATIENT
  Age: 78 Year
  Sex: Female
  Weight: 58.8 kg

DRUGS (1)
  1. STELARA [Suspect]
     Active Substance: USTEKINUMAB
     Indication: CROHN^S DISEASE
     Route: 058
     Dates: start: 20170218

REACTIONS (6)
  - Blood iron increased [Unknown]
  - Cardiac disorder [Unknown]
  - Cataract [Not Recovered/Not Resolved]
  - Haemorrhoids [Unknown]
  - Pertussis [Unknown]
  - Crohn^s disease [Unknown]

NARRATIVE: CASE EVENT DATE: 201904
